FAERS Safety Report 23950483 (Version 1)
Quarter: 2024Q2

REPORT INFORMATION
  Report Type: Spontaneous
  Country: US (occurrence: US)
  Receive Date: 20240607
  Receipt Date: 20240607
  Transmission Date: 20240716
  Serious: Yes (Hospitalization)
  Sender: FDA-Public Use
  Company Number: US-PPDUS-2024ST002005

PATIENT
  Age: 54 Year
  Sex: Female

DRUGS (2)
  1. ORSERDU [Suspect]
     Active Substance: ELACESTRANT
     Indication: Product used for unknown indication
     Dosage: 345 MG
     Route: 048
     Dates: start: 20240212
  2. ORSERDU [Suspect]
     Active Substance: ELACESTRANT
     Dosage: 258 MG
     Route: 048
     Dates: start: 20240212

REACTIONS (4)
  - Metastases to central nervous system [Unknown]
  - Malaise [Recovering/Resolving]
  - Product dose omission in error [Recovering/Resolving]
  - Neoplasm progression [Recovering/Resolving]
